FAERS Safety Report 23357630 (Version 3)
Quarter: 2024Q1

REPORT INFORMATION
  Report Type: Report from Study
  Country: DE (occurrence: DE)
  Receive Date: 20240102
  Receipt Date: 20240125
  Transmission Date: 20240410
  Serious: Yes (Hospitalization, Other)
  Sender: FDA-Public Use
  Company Number: DE-PFM-2021-08530

PATIENT
  Sex: Male
  Weight: 81 kg

DRUGS (11)
  1. BRAFTOVI [Suspect]
     Active Substance: ENCORAFENIB
     Indication: Colorectal cancer
     Dosage: 300 MG/DAY
     Route: 048
     Dates: start: 20210310
  2. BRAFTOVI [Suspect]
     Active Substance: ENCORAFENIB
     Dosage: 300 MG/DAY
     Route: 048
     Dates: start: 20210922, end: 20220629
  3. CETUXIMAB [Suspect]
     Active Substance: CETUXIMAB
     Indication: Colorectal cancer
     Dosage: 250 MG/M2, WEEKLY
     Route: 042
     Dates: start: 20210310
  4. CETUXIMAB [Suspect]
     Active Substance: CETUXIMAB
     Dosage: 250 MG/M2, WEEKLY
     Route: 042
     Dates: start: 20210922
  5. CETUXIMAB [Suspect]
     Active Substance: CETUXIMAB
     Dosage: 250 MG/M2, WEEKLY
     Route: 065
     Dates: start: 20220427, end: 20220629
  6. DEXAMETHASONE SODIUM PHOSPHATE [Concomitant]
     Active Substance: DEXAMETHASONE PHOSPHATE\DEXAMETHASONE SODIUM PHOSPHATE
     Indication: Prophylaxis
     Dosage: 4 MG, WEEKLY
     Route: 048
     Dates: start: 20210310
  7. MINOCYCLINE [Concomitant]
     Active Substance: MINOCYCLINE HYDROCHLORIDE
     Indication: Prophylaxis
     Dosage: 50 MG, DAILY
     Route: 048
     Dates: start: 20210310
  8. DIMETHINDENE MALEATE [Concomitant]
     Active Substance: DIMETHINDENE MALEATE
     Indication: Prophylaxis
     Dosage: 4 MG, WEEKLY
     Route: 042
     Dates: start: 20210310
  9. SODIUM CHLORIDE [Concomitant]
     Active Substance: SODIUM CHLORIDE
     Indication: Prophylaxis
     Dosage: 1000 ML, WEEKLY
     Route: 042
     Dates: start: 20211201
  10. ARANESP [Concomitant]
     Active Substance: DARBEPOETIN ALFA
     Indication: Prophylaxis
     Dosage: 500 UG, PRN, AS NEEDED
     Route: 058
     Dates: start: 20220107
  11. TINKTURA OPII MORMATA [Concomitant]
     Indication: Prophylaxis
     Dosage: 7 UNITS DAILY, FREQUENCY UNKNOWN
     Route: 048
     Dates: start: 20211201

REACTIONS (8)
  - Urinary tract disorder [Recovered/Resolved]
  - Urinary tract obstruction [Recovered/Resolved]
  - Urinary tract disorder [Recovering/Resolving]
  - Blood creatinine increased [Unknown]
  - Visual impairment [Recovered/Resolved]
  - Eye disorder [Recovering/Resolving]
  - Blood creatinine increased [Not Recovered/Not Resolved]
  - Urinary tract disorder [Recovering/Resolving]

NARRATIVE: CASE EVENT DATE: 20210722
